FAERS Safety Report 6890301-X (Version None)
Quarter: 2010Q3

REPORT INFORMATION
  Report Type: 
  Country: None (occurrence: None)
  Receive Date: 20100730
  Receipt Date: 20080924
  Transmission Date: 20110219
  Serious: No
  Sender: FDA-Public Use
  Company Number: US-PFIZER INC-2008081073

PATIENT
  Sex: Male
  Weight: 59.09 kg

DRUGS (3)
  1. LIPITOR [Suspect]
     Indication: PROPHYLAXIS
     Route: 048
     Dates: start: 20080201, end: 20080601
  2. PRAVACHOL [Suspect]
     Dates: start: 20080615, end: 20080101
  3. PLAVIX [Concomitant]

REACTIONS (6)
  - AMNESIA [None]
  - ARTHRALGIA [None]
  - COGNITIVE DISORDER [None]
  - NERVOUSNESS [None]
  - PAIN IN EXTREMITY [None]
  - STRESS [None]
